FAERS Safety Report 8617717-5 (Version None)
Quarter: 2012Q3

REPORT INFORMATION
  Report Type: 
  Country: None (occurrence: None)
  Receive Date: 20120824
  Receipt Date: 20111228
  Transmission Date: 20120928
  Serious: No
  Sender: FDA-Public Use
  Company Number: US-ASTRAZENECA-2011SE78592

PATIENT
  Age: 41 Year
  Sex: Female
  Weight: 66.7 kg

DRUGS (6)
  1. FLUNACE [Concomitant]
  2. LAMICTAL [Concomitant]
  3. WELLBUTRIN [Concomitant]
  4. SYMBICORT [Suspect]
     Indication: ASTHMA
     Dosage: 2 PUFFS BID
     Route: 055
     Dates: start: 20111227
  5. ALLEGRA [Concomitant]
  6. ALBUTEROL [Concomitant]
     Indication: ASTHMA
     Dosage: AS NEEDED

REACTIONS (4)
  - COUGH [None]
  - EXPIRED DRUG ADMINISTERED [None]
  - OFF LABEL USE [None]
  - DRUG PRESCRIBING ERROR [None]
